FAERS Safety Report 23925008 (Version 1)
Quarter: 2024Q2

REPORT INFORMATION
  Report Type: Report from Study
  Country: US (occurrence: US)
  Receive Date: 20240531
  Receipt Date: 20240531
  Transmission Date: 20240716
  Serious: Yes (Hospitalization)
  Sender: FDA-Public Use
  Company Number: US-TEVA-VS-3203665

PATIENT

DRUGS (1)
  1. BUPROPION [Suspect]
     Active Substance: BUPROPION
     Indication: Product used for unknown indication
     Dosage: FORMULATION: EXTENDED-RELEASE TABLET
     Route: 048

REACTIONS (2)
  - Overdose [Unknown]
  - Electrocardiogram QRS complex prolonged [Unknown]
